FAERS Safety Report 4692217-6 (Version None)
Quarter: 2005Q2

REPORT INFORMATION
  Report Type: 
  Country: None (occurrence: None)
  Receive Date: 20050614
  Receipt Date: 20050602
  Transmission Date: 20051028
  Serious: Yes (Death)
  Sender: FDA-Public Use
  Company Number: 2005085413

PATIENT

DRUGS (1)
  1. PREDNISOLONE [Suspect]
     Indication: CHRONIC OBSTRUCTIVE PULMONARY DISEASE
     Dosage: 30 MG (30 MG, 1 IN 1 D)

REACTIONS (1)
  - PANCREATITIS ACUTE [None]
